FAERS Safety Report 14987488 (Version 1)
Quarter: 2018Q2

REPORT INFORMATION
  Report Type: Other
  Country: GB (occurrence: GB)
  Receive Date: 20180608
  Receipt Date: 20180608
  Transmission Date: 20180711
  Serious: Yes (Hospitalization, Other)
  Sender: FDA-Public Use
  Company Number: GB-AJANTA PHARMA USA INC.-2049156

PATIENT
  Age: 87 Year
  Sex: Female

DRUGS (1)
  1. RIVASTIGMINE TARTRATE (ANDA 207797) [Suspect]
     Active Substance: RIVASTIGMINE TARTRATE
     Indication: DEMENTIA ALZHEIMER^S TYPE
     Route: 062
     Dates: start: 201310

REACTIONS (3)
  - Femoral neck fracture [Unknown]
  - Loss of consciousness [Recovered/Resolved]
  - Atrioventricular block [Recovered/Resolved]

NARRATIVE: CASE EVENT DATE: 20180316
